FAERS Safety Report 24190928 (Version 2)
Quarter: 2024Q3

REPORT INFORMATION
  Report Type: Spontaneous
  Country: CN (occurrence: CN)
  Receive Date: 20240808
  Receipt Date: 20240814
  Transmission Date: 20241016
  Serious: Yes (Life-Threatening, Other)
  Sender: SANOFI AVENTIS
  Company Number: CN-SA-2024SA232892

PATIENT
  Age: 67 Year
  Sex: Male

DRUGS (11)
  1. OXALIPLATIN [Suspect]
     Active Substance: OXALIPLATIN
     Indication: Adenocarcinoma gastric
     Dosage: 130 MG/M2 ON DAY 1
     Dates: start: 202303, end: 202303
  2. OXALIPLATIN [Suspect]
     Active Substance: OXALIPLATIN
     Dosage: 130 MG/M2 ON DAY 1
     Dates: start: 202304, end: 202304
  3. OXALIPLATIN [Suspect]
     Active Substance: OXALIPLATIN
     Dosage: 130 MG/M2 ON DAY 1
     Dates: start: 202305, end: 202305
  4. OXALIPLATIN [Suspect]
     Active Substance: OXALIPLATIN
     Dosage: 130 MG/M2 ON DAY 1
     Dates: start: 202306, end: 202306
  5. CAPECITABINE [Concomitant]
     Active Substance: CAPECITABINE
     Indication: Adenocarcinoma gastric
     Dosage: 1000 MG/M2 DAY 1-14
     Dates: start: 202303, end: 202303
  6. CAPECITABINE [Concomitant]
     Active Substance: CAPECITABINE
     Dosage: 1000 MG/M2 DAY 1-14
     Dates: start: 202304, end: 202304
  7. CAPECITABINE [Concomitant]
     Active Substance: CAPECITABINE
     Dosage: 1000 MG/M2 DAY 1-14
     Dates: start: 202305, end: 202305
  8. CAPECITABINE [Concomitant]
     Active Substance: CAPECITABINE
     Dosage: 1000 MG/M2 DAY 1-14
     Dates: start: 202306, end: 202306
  9. TISLELIZUMAB [Concomitant]
     Active Substance: TISLELIZUMAB
     Indication: Adenocarcinoma gastric
     Dosage: 200 MG, QCY ON DAY 1
     Dates: start: 202303, end: 202303
  10. TISLELIZUMAB [Concomitant]
     Active Substance: TISLELIZUMAB
     Dosage: 200 MG, QCY ON DAY 1
     Dates: start: 202304, end: 202304
  11. TISLELIZUMAB [Concomitant]
     Active Substance: TISLELIZUMAB
     Dosage: 200 MG, QCY ON DAY 1
     Dates: start: 202305, end: 202305

REACTIONS (18)
  - Hypersensitivity [Recovered/Resolved]
  - Chills [Recovered/Resolved]
  - Pyrexia [Recovered/Resolved]
  - Neutropenia [Recovered/Resolved]
  - Thrombocytopenia [Recovered/Resolved]
  - Flushing [Recovered/Resolved]
  - Hepatic function abnormal [Recovered/Resolved]
  - Shock [Recovered/Resolved]
  - Mental impairment [Recovered/Resolved]
  - Somnolence [Recovered/Resolved]
  - Atrial fibrillation [Recovered/Resolved]
  - Pneumonitis [Recovered/Resolved]
  - Pleural effusion [Recovered/Resolved]
  - Ascites [Recovered/Resolved]
  - Multiple organ dysfunction syndrome [Recovered/Resolved]
  - Cardiac failure [Recovered/Resolved]
  - Renal impairment [Recovered/Resolved]
  - Lymphadenitis [Recovered/Resolved]
